FAERS Safety Report 22185901 (Version 1)
Quarter: 2023Q2

REPORT INFORMATION
  Report Type: Spontaneous
  Country: US (occurrence: US)
  Receive Date: 20230407
  Receipt Date: 20230407
  Transmission Date: 20230722
  Serious: No
  Sender: FDA-Public Use
  Company Number: US-LEO Pharma-349749

PATIENT
  Sex: Male

DRUGS (5)
  1. ALBUTEROL SULFATE [Concomitant]
     Active Substance: ALBUTEROL SULFATE
     Indication: Product used for unknown indication
     Dosage: DOSAGE : REASON LOT NO UNKNOWN : UNKNOWN GIVEN DURATION : STARTED - PARTIAL : STOPPED - PARTIAL :
  2. TYLENOL [Concomitant]
     Active Substance: ACETAMINOPHEN
     Indication: Product used for unknown indication
     Dosage: DOSAGE : 325 MG TABLET REASON LOT NO UNKNOWN : UNKNOWN GIVEN DURATION :
  3. IBUPROFEN [Concomitant]
     Active Substance: IBUPROFEN
     Indication: Product used for unknown indication
     Dosage: DOSAGE : 200 MG CAPSULE REASON LOT NO UNKNOWN : UNKNOWN GIVEN DURATION :
  4. ADBRY [Suspect]
     Active Substance: TRALOKINUMAB-LDRM
     Indication: Dermatitis atopic
     Dosage: DOSAGE : 4 INJECTIONS FOR THE INITIAL DOSE
     Route: 058
     Dates: start: 202211
  5. PREDNISONE [Concomitant]
     Active Substance: PREDNISONE
     Indication: Product used for unknown indication
     Dosage: DOSAGE : 10 MG TABLET REASON LOT NO UNKNOWN : UNKNOWN GIVEN DURATION :

REACTIONS (3)
  - Drug ineffective [Unknown]
  - Instillation site pain [Unknown]
  - Fatigue [Unknown]
